FAERS Safety Report 10234890 (Version 1)
Quarter: 2014Q2

REPORT INFORMATION
  Report Type: Spontaneous
  Country: US (occurrence: US)
  Receive Date: 20140613
  Receipt Date: 20140613
  Transmission Date: 20141212
  Serious: No
  Sender: FDA-Public Use
  Company Number: US-JNJFOC-20140519971

PATIENT
  Sex: Female
  Weight: 68.04 kg

DRUGS (4)
  1. DURAGESIC [Suspect]
     Indication: PAIN
     Route: 062
  2. DURAGESIC [Suspect]
     Indication: PAIN
     Route: 062
  3. FENTANYL TRANSDERMAL SYSTEM [Suspect]
     Indication: PAIN
     Route: 062
  4. MALLINCKRODT FENTANYL PATCHES [Suspect]
     Indication: PAIN
     Route: 062

REACTIONS (5)
  - Hyperhidrosis [Unknown]
  - Product adhesion issue [Unknown]
  - Pain [Recovered/Resolved]
  - Wrong technique in drug usage process [Unknown]
  - Condition aggravated [Recovered/Resolved]
